FAERS Safety Report 10027859 (Version 2)
Quarter: 2014Q2

REPORT INFORMATION
  Report Type: Spontaneous
  Country: US (occurrence: US)
  Receive Date: 20140321
  Receipt Date: 20140407
  Transmission Date: 20141212
  Serious: Yes (Life-Threatening, Hospitalization, Other)
  Sender: FDA-Public Use
  Company Number: US-AMGEN-USASP2014018813

PATIENT
  Age: 70 Year
  Sex: Female

DRUGS (29)
  1. ENBREL [Suspect]
     Indication: PRODUCT USED FOR UNKNOWN INDICATION
     Dosage: UNK
     Route: 065
  2. HUMIRA [Suspect]
     Indication: RHEUMATOID ARTHRITIS
     Dosage: 40 MG/ML, 1 IN 2
     Route: 065
     Dates: start: 2007
  3. METOPROLOL [Concomitant]
     Indication: HEART RATE
     Dosage: 100 MG, BID
  4. METOPROLOL [Concomitant]
     Indication: BLOOD PRESSURE
  5. TRIAMTERENE [Concomitant]
     Indication: OEDEMA
     Dosage: 37.5/25 MG, QD
  6. TRIAMTERENE [Concomitant]
     Indication: BLOOD PRESSURE
  7. KLOR CON [Concomitant]
     Indication: NEPHROLITHIASIS
     Dosage: UNK UNK, TID
  8. POTASSIUM CITRATE [Concomitant]
     Indication: NEPHROLITHIASIS
     Dosage: 10 MEQ, TID
  9. ALLOPURINOL [Concomitant]
     Dosage: 100 MG, BID
  10. EVOXAC [Concomitant]
     Indication: SJOGREN^S SYNDROME
     Dosage: 30 MG, TID
  11. GLIMEPIRIDE [Concomitant]
     Dosage: 2 MG, BID
  12. FOLIC ACID [Concomitant]
     Dosage: 2 MG, DAILY FOR 6 DAYS (NOT TAKEN THE DAY SHE TOOK METHOTREXATE)
  13. METHOTREXATE [Concomitant]
     Dosage: 25 MG, QWK
  14. FLEXERIL                           /00428402/ [Concomitant]
     Indication: BACK PAIN
     Dosage: UNK
  15. PREDNISONE [Concomitant]
     Dosage: VARIOUS DOSES CURRENTLY 10 MG BUT HAD DONE 5 MG FOR YEARS, QD
  16. NEXIUM                             /01479302/ [Concomitant]
     Indication: GASTROOESOPHAGEAL REFLUX DISEASE
     Dosage: 40 MG, BID
  17. NEXIUM                             /01479302/ [Concomitant]
     Indication: HIATUS HERNIA
  18. INTEGRA PLUS [Concomitant]
     Indication: ANAEMIA
     Dosage: UNK
  19. VITAMIN B12                        /00056201/ [Concomitant]
     Dosage: UNK UNK, QD
     Route: 060
  20. CALCIUM [Concomitant]
     Dosage: 600 MG, QD
  21. VITAMIN D3 [Concomitant]
     Dosage: 10000 UNK, QD
  22. XALATAN [Concomitant]
     Indication: GLAUCOMA
     Dosage: DROPS TO EACH EYE, QD
  23. ASPIRIN [Concomitant]
     Dosage: 325 MG, QD
  24. PLAVIX [Concomitant]
     Dosage: 75 MG, QD
  25. CRESTOR [Concomitant]
     Dosage: 10 MG, QD
  26. OCUVITE                            /01053801/ [Concomitant]
     Indication: MACULAR DEGENERATION
     Dosage: DROPS TO EACH EYE DAILY
  27. SINGULAIR [Concomitant]
     Indication: ASTHMA
     Dosage: 10 MG, QD
  28. ZYRTEC [Concomitant]
     Indication: ASTHMA
     Dosage: UNK UNK, QD
  29. ALBUTEROL                          /00139501/ [Concomitant]
     Indication: ASTHMA
     Dosage: 4 MG, AT BEDTIME

REACTIONS (25)
  - Apparent death [Unknown]
  - Renal failure [Unknown]
  - Small intestinal obstruction [Unknown]
  - White blood cell count decreased [Unknown]
  - Crohn^s disease [Unknown]
  - Peripheral swelling [Unknown]
  - Thrombosis [Unknown]
  - Malaise [Unknown]
  - Gastrointestinal pain [Unknown]
  - Abdominal pain [Unknown]
  - Hypophagia [Unknown]
  - Rectal cancer [Unknown]
  - Squamous cell carcinoma of the vagina [Unknown]
  - Nephrolithiasis [Unknown]
  - Rheumatoid arthritis [Unknown]
  - Anaemia [Unknown]
  - Iron deficiency [Unknown]
  - Weight decreased [Unknown]
  - Sciatica [Unknown]
  - Therapeutic procedure [Unknown]
  - Feeling abnormal [Unknown]
  - Osteoarthritis [Unknown]
  - Large intestine polyp [Unknown]
  - Hyperkeratosis [Unknown]
  - Scab [Unknown]
